FAERS Safety Report 8447083 (Version 2)
Quarter: 2013Q4

REPORT INFORMATION
  Report Type: Spontaneous
  Country: US (occurrence: US)
  Receive Date: 20120308
  Receipt Date: 20131118
  Transmission Date: 20140711
  Serious: Yes (Other)
  Sender: FDA-Public Use
  Company Number: US-MILLENNIUM PHARMACEUTICALS, INC.-2012-01393

PATIENT
  Age: 80 Year
  Sex: 0

DRUGS (1)
  1. VELCADE [Suspect]
     Indication: PLASMA CELL MYELOMA
     Dosage: 3 MG/M2, ON DAYS 1, 4, 8 AND 11 EVERY 3 WEEKS
     Route: 042
     Dates: start: 20100414, end: 20100415

REACTIONS (4)
  - Pneumoperitoneum [Unknown]
  - Diverticular perforation [Unknown]
  - Pulmonary embolism [Unknown]
  - Thrombocytopenia [Unknown]
